FAERS Safety Report 9456931 (Version 1)
Quarter: 2013Q3

REPORT INFORMATION
  Report Type: Spontaneous
  Country: AU (occurrence: AU)
  Receive Date: 20130813
  Receipt Date: 20130813
  Transmission Date: 20140515
  Serious: Yes (Other)
  Sender: FDA-Public Use
  Company Number: AU-ROCHE-1260096

PATIENT
  Sex: 0

DRUGS (3)
  1. LUCENTIS [Suspect]
     Indication: AGE-RELATED MACULAR DEGENERATION
     Dosage: DRUG STOPPED ON UNSPECIFIED DATE. RECEIVED FOR 6 MONTHS
     Route: 050
  2. LUCENTIS [Suspect]
     Dosage: DRUG RE STARTED
     Route: 050
  3. AFLIBERCEPT [Suspect]
     Indication: PRODUCT USED FOR UNKNOWN INDICATION
     Route: 065

REACTIONS (2)
  - Eye disorder [Unknown]
  - Visual acuity reduced [Unknown]
